FAERS Safety Report 10521996 (Version 1)
Quarter: 2014Q4

REPORT INFORMATION
  Report Type: Spontaneous
  Country: US (occurrence: None)
  Receive Date: 20141014
  Receipt Date: 20141014
  Transmission Date: 20150528
  Serious: Yes (Other)
  Sender: FDA-Public Use
  Company Number: ORE201409-000317

PATIENT
  Age: 26 Year
  Sex: Male
  Weight: 111 kg

DRUGS (1)
  1. ZUBSOLV [Suspect]
     Active Substance: BUPRENORPHINE HYDROCHLORIDE\NALOXONE HYDROCHLORIDE
     Indication: DRUG DEPENDENCE
     Dosage: 5.7/1.4 MG (0.5 DOSAGE FORMS, 1 IN 1 D), SUBLINGUAL
     Route: 050
     Dates: start: 20140923, end: 20140923

REACTIONS (3)
  - Drug withdrawal syndrome [None]
  - Tremor [None]
  - Suicidal ideation [None]

NARRATIVE: CASE EVENT DATE: 20140923
